FAERS Safety Report 20193641 (Version 4)
Quarter: 2022Q4

REPORT INFORMATION
  Report Type: Spontaneous
  Country: BE (occurrence: BE)
  Receive Date: 20211216
  Receipt Date: 20221009
  Transmission Date: 20230112
  Serious: Yes (Death, Hospitalization)
  Sender: FDA-Public Use
  Company Number: BE-Accord-246447

PATIENT
  Age: 80 Year
  Sex: Male
  Weight: 51 kg

DRUGS (20)
  1. RITUXIMAB [Suspect]
     Active Substance: RITUXIMAB
     Indication: Product used for unknown indication
     Dosage: 1Q2W
     Route: 041
     Dates: start: 20211020, end: 20211103
  2. GEMCITABINE HYDROCHLORIDE [Suspect]
     Active Substance: GEMCITABINE HYDROCHLORIDE
     Indication: Product used for unknown indication
     Dosage: 1Q2W
     Route: 042
     Dates: start: 20211020, end: 20211103
  3. OXALIPLATIN [Suspect]
     Active Substance: OXALIPLATIN
     Indication: Product used for unknown indication
     Dosage: 1Q2W
     Route: 042
     Dates: start: 20211020, end: 20211103
  4. SOLU-MEDROL [Concomitant]
     Active Substance: METHYLPREDNISOLONE SODIUM SUCCINATE
     Dates: start: 20211020, end: 20211103
  5. PANTOPRAZOLE SODIUM [Concomitant]
     Active Substance: PANTOPRAZOLE SODIUM
     Dates: start: 20210312
  6. MAGNESIUM [Concomitant]
     Active Substance: MAGNESIUM
     Dates: start: 20211130
  7. MOVICOL [Concomitant]
     Active Substance: POLYETHYLENE GLYCOL 3350\POTASSIUM CHLORIDE\SODIUM BICARBONATE\SODIUM CHLORIDE
     Dates: start: 20160312
  8. LASIX [Concomitant]
     Active Substance: FUROSEMIDE
     Dates: start: 20211113, end: 20211113
  9. ASPIRIN [Concomitant]
     Active Substance: ASPIRIN
     Dates: start: 20181212, end: 20211211
  10. ALOXI [Concomitant]
     Active Substance: PALONOSETRON HYDROCHLORIDE
     Dates: start: 20211020, end: 20211103
  11. ALLOPURINOL [Concomitant]
     Active Substance: ALLOPURINOL
     Dates: start: 20211207, end: 20211211
  12. DEXAMETHASONE [Concomitant]
     Active Substance: DEXAMETHASONE
     Dates: start: 20211021, end: 20211105
  13. DAFALGAN [Concomitant]
     Active Substance: ACETAMINOPHEN
     Dates: start: 20211112, end: 20211119
  14. DAFALGAN [Concomitant]
     Active Substance: ACETAMINOPHEN
     Dates: start: 20211020, end: 20211103
  15. ENOXAPARIN SODIUM [Concomitant]
     Active Substance: ENOXAPARIN SODIUM
     Dates: start: 20211115, end: 20211118
  16. MEDROL [Concomitant]
     Active Substance: METHYLPREDNISOLONE
     Dates: start: 20211108, end: 20211112
  17. CETIRIZINE [Concomitant]
     Active Substance: CETIRIZINE HYDROCHLORIDE
     Dates: start: 20211020, end: 20211103
  18. NIQUITIN [Concomitant]
     Active Substance: NICOTINE
     Dates: start: 20211114, end: 20211119
  19. GLYCOPYRROLATE [Concomitant]
     Active Substance: GLYCOPYRROLATE
     Dates: start: 20160518
  20. FENOTEROL HYDROBROMIDE [Concomitant]
     Active Substance: FENOTEROL HYDROBROMIDE
     Dates: start: 20160927

REACTIONS (4)
  - Infective exacerbation of chronic obstructive airways disease [Fatal]
  - Pulmonary embolism [Not Recovered/Not Resolved]
  - Pneumonia [Recovered/Resolved]
  - Off label use [Unknown]

NARRATIVE: CASE EVENT DATE: 20211112
